FAERS Safety Report 11449087 (Version 4)
Quarter: 2016Q1

REPORT INFORMATION
  Report Type: Report from Study
  Country: US (occurrence: US)
  Receive Date: 20150902
  Receipt Date: 20160115
  Transmission Date: 20160525
  Serious: Yes (Hospitalization)
  Sender: FDA-Public Use
  Company Number: US-ACTELION-A-NJ2015-120692

PATIENT
  Age: 80 Year
  Sex: Female

DRUGS (17)
  1. LASIX [Concomitant]
     Active Substance: FUROSEMIDE
  2. K-TAB [Concomitant]
     Active Substance: POTASSIUM CHLORIDE
  3. SPIRIVA [Concomitant]
     Active Substance: TIOTROPIUM BROMIDE MONOHYDRATE
  4. COZAAR [Concomitant]
     Active Substance: LOSARTAN POTASSIUM
     Dosage: 50 MG, QD
  5. VITAMIN D [Concomitant]
     Active Substance: CHOLECALCIFEROL
  6. METOPROLOL. [Concomitant]
     Active Substance: METOPROLOL
     Dosage: 125 MG, QD
  7. MULTIVITAMIN [Concomitant]
     Active Substance: VITAMINS
  8. CZAR [Concomitant]
  9. FISH OIL [Concomitant]
     Active Substance: FISH OIL
  10. FOLIC ACID. [Concomitant]
     Active Substance: FOLIC ACID
  11. ASA [Concomitant]
     Active Substance: ASPIRIN
  12. OXYCODONE [Concomitant]
     Active Substance: OXYCODONE
  13. LIPITOR [Concomitant]
     Active Substance: ATORVASTATIN CALCIUM
  14. METAMUCIL [Concomitant]
     Active Substance: PLANTAGO SEED
  15. PRILOSEC [Concomitant]
     Active Substance: OMEPRAZOLE MAGNESIUM
  16. TRACLEER [Suspect]
     Active Substance: BOSENTAN
     Indication: PULMONARY HYPERTENSION
     Dosage: 125 MG, BID
     Route: 048
     Dates: start: 20041001
  17. COUMADIN [Concomitant]
     Active Substance: WARFARIN SODIUM

REACTIONS (9)
  - Mitral valve incompetence [Recovered/Resolved]
  - Aortic stenosis [Recovered/Resolved]
  - Incisional drainage [Recovering/Resolving]
  - Aortic valve replacement [Recovered/Resolved]
  - Catheter site infection [Unknown]
  - Wound [Recovering/Resolving]
  - Mitral valve repair [Recovered/Resolved]
  - Aortic surgery [Unknown]
  - Groin infection [Recovering/Resolving]

NARRATIVE: CASE EVENT DATE: 20150702
